FAERS Safety Report 9985297 (Version 1)
Quarter: 2014Q1

REPORT INFORMATION
  Report Type: Report from Study
  Country: US (occurrence: US)
  Receive Date: 20140307
  Receipt Date: 20140307
  Transmission Date: 20141002
  Serious: No
  Sender: FDA-Public Use
  Company Number: US-ABBVIE-13P-163-1184966-00

PATIENT
  Age: 19 Year
  Sex: Female

DRUGS (7)
  1. HUMIRA [Suspect]
     Indication: COLITIS ULCERATIVE
     Dates: start: 20131125, end: 20131125
  2. HUMIRA [Suspect]
     Dates: start: 20131209, end: 20131209
  3. HUMIRA [Suspect]
     Dosage: MAINTENANCE DOSE
     Dates: start: 20131222
  4. LIALDA [Concomitant]
     Indication: COLITIS ULCERATIVE
     Route: 048
  5. MUSCLE RELAXANTS [Concomitant]
     Indication: PRODUCT USED FOR UNKNOWN INDICATION
  6. ROBINUL [Concomitant]
     Indication: COLITIS ULCERATIVE
     Dosage: GENERIC
  7. MUCINEX D WITH ZYRTEC [Concomitant]
     Indication: SEASONAL ALLERGY

REACTIONS (1)
  - Inappropriate schedule of drug administration [Unknown]
